FAERS Safety Report 19393971 (Version 1)
Quarter: 2021Q2

REPORT INFORMATION
  Report Type: Spontaneous
  Country: US (occurrence: US)
  Receive Date: 20210608
  Receipt Date: 20210608
  Transmission Date: 20210717
  Serious: Yes (Death, Life-Threatening, Hospitalization, Disabling)
  Sender: FDA-Public Use
  Company Number: None

PATIENT
  Age: 93 Year
  Sex: Female
  Weight: 58.5 kg

DRUGS (6)
  1. PROLIA [Suspect]
     Active Substance: DENOSUMAB
     Indication: OSTEOPOROSIS
     Dosage: ?          QUANTITY:1 INJECTION(S);OTHER FREQUENCY:EVERY 6 MONTHS;OTHER ROUTE:INJECTION?
     Dates: start: 20191219, end: 20200701
  2. VIT D [Concomitant]
     Active Substance: VITAMIN D NOS
  3. PACEMAKER FOR AFIB [Concomitant]
  4. VITAMIN C [Concomitant]
     Active Substance: ASCORBIC ACID
  5. TYLENOL [Concomitant]
     Active Substance: ACETAMINOPHEN
  6. CALCIUM [Concomitant]
     Active Substance: CALCIUM

REACTIONS (6)
  - Malnutrition [None]
  - Joint swelling [None]
  - Erythema [None]
  - Pain [None]
  - Oesophageal carcinoma [None]
  - Product complaint [None]

NARRATIVE: CASE EVENT DATE: 20201221
